FAERS Safety Report 4416932-4 (Version None)
Quarter: 2004Q3

REPORT INFORMATION
  Report Type: 
  Country: None (occurrence: None)
  Receive Date: 20040806
  Receipt Date: 20040716
  Transmission Date: 20050211
  Serious: Yes (Hospitalization)
  Sender: FDA-Public Use
  Company Number: JP-BRISTOL-MYERS SQUIBB COMPANY-12646386

PATIENT
  Age: 77 Year
  Sex: Male

DRUGS (10)
  1. GATIFLO TABS 100 MG [Suspect]
     Indication: PNEUMONIA
     Route: 048
     Dates: start: 20040702, end: 20040715
  2. LASIX [Concomitant]
     Route: 048
     Dates: start: 20010921
  3. ZYLORIC [Concomitant]
     Route: 048
     Dates: start: 20011207
  4. MUCODYNE [Concomitant]
     Route: 048
     Dates: start: 20010808
  5. MAGNESIUM OXIDE [Concomitant]
     Route: 048
     Dates: start: 20010808
  6. ALPRAZOLAM [Concomitant]
     Route: 048
     Dates: start: 19951109
  7. MUCOSOLVAN [Concomitant]
     Route: 048
     Dates: start: 20010808
  8. TERSIGAN [Concomitant]
     Dosage: DOSAGE FORM = PUFFS
     Route: 055
     Dates: start: 20001121
  9. TENORMIN [Concomitant]
     Route: 048
     Dates: start: 20011120
  10. CLARITH [Concomitant]
     Indication: PNEUMONIA
     Dates: start: 20040630, end: 20040702

REACTIONS (1)
  - HYPERGLYCAEMIA [None]
